FAERS Safety Report 21287241 (Version 1)
Quarter: 2022Q3

REPORT INFORMATION
  Report Type: Spontaneous
  Country: US (occurrence: None)
  Receive Date: 20220902
  Receipt Date: 20220902
  Transmission Date: 20221026
  Serious: Yes (Other)
  Sender: FDA-Public Use
  Company Number: None

PATIENT
  Age: 35 Year

DRUGS (2)
  1. INVEGA SUSTENNA [Suspect]
     Active Substance: PALIPERIDONE PALMITATE
  2. ZIPRASIDONE [Suspect]
     Active Substance: ZIPRASIDONE

REACTIONS (1)
  - Product use issue [None]

NARRATIVE: CASE EVENT DATE: 20220901
